FAERS Safety Report 19474349 (Version 1)
Quarter: 2021Q2

REPORT INFORMATION
  Report Type: Report from Study
  Country: US (occurrence: US)
  Receive Date: 20210630
  Receipt Date: 20210630
  Transmission Date: 20210717
  Serious: Yes (Hospitalization)
  Sender: FDA-Public Use
  Company Number: US-AMGEN-USACT2021026306

PATIENT
  Age: 83 Year
  Sex: Female
  Weight: 65.3 kg

DRUGS (16)
  1. BENZONATATE. [Concomitant]
     Active Substance: BENZONATATE
     Dosage: 100 MILLIGRAM
     Route: 048
     Dates: start: 2017
  2. ADVAIR HFA [Concomitant]
     Active Substance: FLUTICASONE PROPIONATE\SALMETEROL XINAFOATE
     Dosage: 1 UNK
     Route: 050
     Dates: start: 2017
  3. SPIRIVA [Concomitant]
     Active Substance: TIOTROPIUM BROMIDE MONOHYDRATE
     Dosage: 2.5 MICROGRAM
     Route: 050
     Dates: start: 2018
  4. ALBUTEROL HFA [Concomitant]
     Active Substance: ALBUTEROL SULFATE
     Dosage: 90 MICROGRAM
     Route: 050
     Dates: start: 2018, end: 20210223
  5. FAMOTIDINE. [Concomitant]
     Active Substance: FAMOTIDINE
     Dosage: 20 MILLIGRAM
     Route: 048
     Dates: start: 20210127
  6. IPRATROPIUM BROMIDE. [Concomitant]
     Active Substance: IPRATROPIUM BROMIDE
     Dosage: 0.05 MILLIGRAM
     Route: 050
     Dates: start: 2018, end: 20210223
  7. LORAZEPAM. [Concomitant]
     Active Substance: LORAZEPAM
     Dosage: 0.5 MILLIGRAM
     Route: 048
     Dates: start: 20210106
  8. TRIAMCINOLONE [Concomitant]
     Active Substance: TRIAMCINOLONE
     Dosage: 1 UNK
     Route: 061
     Dates: start: 2016, end: 20210215
  9. OMEPRAZOLE. [Concomitant]
     Active Substance: OMEPRAZOLE
     Dosage: 20 MILLIGRAM
     Route: 048
     Dates: start: 2014, end: 20210126
  10. GABAPENTIN. [Concomitant]
     Active Substance: GABAPENTIN
     Dosage: 100 MILLIGRAM
     Route: 048
     Dates: start: 2019
  11. ALBUTEROL SULFATE. [Concomitant]
     Active Substance: ALBUTEROL SULFATE
     Dosage: 3 MILLIGRAM
     Route: 050
     Dates: start: 2018, end: 20210223
  12. AMG 510 [Suspect]
     Active Substance: AMG-510
     Indication: K-RAS GENE MUTATION
  13. SERTRALINE [Concomitant]
     Active Substance: SERTRALINE HYDROCHLORIDE
     Dosage: 50 MILLIGRAM
     Route: 048
     Dates: start: 2016
  14. VANCOMYCIN [Concomitant]
     Active Substance: VANCOMYCIN
     Dosage: 135 MILLIGRAM
     Route: 048
     Dates: start: 201910
  15. AMG 510 [Suspect]
     Active Substance: AMG-510
     Indication: NON-SMALL CELL LUNG CANCER STAGE IV
     Dosage: 960 MILLIGRAM
     Route: 048
     Dates: start: 20210106
  16. CYCLOBENZAPRINE. [Concomitant]
     Active Substance: CYCLOBENZAPRINE
     Dosage: 5 MILLIGRAM
     Route: 048
     Dates: start: 202011, end: 20210215

REACTIONS (1)
  - Pleural effusion [Recovered/Resolved]

NARRATIVE: CASE EVENT DATE: 20210215
